FAERS Safety Report 7912696-8 (Version None)
Quarter: 2011Q4

REPORT INFORMATION
  Report Type: 
  Country: None (occurrence: None)
  Receive Date: 20111114
  Receipt Date: 20111103
  Transmission Date: 20120403
  Serious: Yes (Hospitalization)
  Sender: FDA-Public Use
  Company Number: BR-SANOFI-AVENTIS-2010SA022239

PATIENT
  Age: 83 Year
  Sex: Male
  Weight: 92 kg

DRUGS (19)
  1. LANTUS [Suspect]
     Route: 058
     Dates: start: 20040101
  2. LANTUS [Suspect]
     Route: 058
  3. CALCIUM CARBONATE/CALCIUM GLUCONATE/CALCIUM LACTATE/ERGOCALCIFEROL [Concomitant]
     Route: 048
  4. PIROXICAM [Concomitant]
     Route: 048
  5. OPTIPEN [Suspect]
     Indication: DEVICE THERAPY
     Dates: start: 20060101
  6. ACETYLSALICYLIC ACID SRT [Concomitant]
     Indication: ANTICOAGULANT THERAPY
     Route: 048
  7. FINASTERIDE [Concomitant]
     Dosage: STRENGTH: 5MG
     Route: 048
  8. LOSARTAN POTASSIUM [Concomitant]
     Indication: BLOOD PRESSURE
     Route: 048
  9. NOVORAPID [Concomitant]
     Dosage: 8 IU BEFORE LUNCH AND 6 IU BEFORE DINNER
     Route: 058
     Dates: start: 19960101
  10. ALPRAZOLAM [Concomitant]
     Route: 048
  11. DOXAZOSIN MESYLATE [Concomitant]
     Dosage: STRENGTH:2MG
     Route: 048
  12. LANTUS [Suspect]
     Route: 058
  13. HALOPERIDOL [Concomitant]
     Dosage: STRENGTH:300MG
     Route: 048
  14. ROSUVASTATIN CALCIUM [Concomitant]
     Dosage: STRENGTH: 10MG
     Route: 048
  15. AUTOPEN 24 [Suspect]
     Indication: DEVICE THERAPY
  16. ATENOLOL [Concomitant]
     Indication: BLOOD PRESSURE
     Route: 048
     Dates: start: 19960101
  17. HYDROCHLOROTHIAZIDE [Concomitant]
     Route: 048
  18. TRETINOIN [Concomitant]
     Indication: SKIN CANCER
     Dosage: STRENGTH:1 MG
     Route: 048
  19. FELDENE [Concomitant]
     Route: 048

REACTIONS (9)
  - BENIGN PROSTATIC HYPERPLASIA [None]
  - CHONDROPATHY [None]
  - HYPERGLYCAEMIA [None]
  - VERTIGO [None]
  - URINARY TRACT INFECTION [None]
  - CHILLS [None]
  - HYPOGLYCAEMIA [None]
  - WEIGHT DECREASED [None]
  - RENAL IMPAIRMENT [None]
